FAERS Safety Report 21364015 (Version 1)
Quarter: 2022Q3

REPORT INFORMATION
  Report Type: Spontaneous
  Country: US (occurrence: None)
  Receive Date: 20220921
  Receipt Date: 20220921
  Transmission Date: 20221027
  Serious: Yes (Hospitalization)
  Sender: FDA-Public Use
  Company Number: None

PATIENT
  Age: 55 Year
  Sex: Female
  Weight: 88.5 kg

DRUGS (1)
  1. BELATACEPT [Suspect]
     Active Substance: BELATACEPT
     Indication: Renal transplant
     Dosage: FREQUENCY : MONTHLY;?
     Route: 041
     Dates: start: 20220215

REACTIONS (3)
  - Abdominal pain [None]
  - Pain [None]
  - Vomiting [None]

NARRATIVE: CASE EVENT DATE: 20220920
